FAERS Safety Report 20805312 (Version 2)
Quarter: 2022Q2

REPORT INFORMATION
  Report Type: Spontaneous
  Country: US (occurrence: US)
  Receive Date: 20220509
  Receipt Date: 20220612
  Transmission Date: 20220721
  Serious: Yes (Other)
  Sender: FDA-Public Use
  Company Number: US-JNJFOC-20220505500

PATIENT
  Age: 48 Year
  Sex: Female
  Weight: 77.180 kg

DRUGS (2)
  1. STELARA [Suspect]
     Active Substance: USTEKINUMAB
     Indication: Crohn^s disease
     Dates: start: 20220208
  2. STELARA [Suspect]
     Active Substance: USTEKINUMAB
     Route: 058
     Dates: start: 20220208

REACTIONS (5)
  - Crohn^s disease [Unknown]
  - Needle issue [Unknown]
  - Visual impairment [Unknown]
  - Product administration error [Unknown]
  - Product label issue [Unknown]

NARRATIVE: CASE EVENT DATE: 20220503
